FAERS Safety Report 7799314-7 (Version None)
Quarter: 2011Q4

REPORT INFORMATION
  Report Type: 
  Country: None (occurrence: None)
  Receive Date: 20111006
  Receipt Date: 20110926
  Transmission Date: 20120403
  Serious: Yes (Other)
  Sender: FDA-Public Use
  Company Number: BR-JNJFOC-20110911586

PATIENT
  Age: 76 Year
  Sex: Male
  Weight: 64 kg

DRUGS (3)
  1. GALANTAMINE HYDROBROMIDE [Suspect]
     Indication: PRODUCT USED FOR UNKNOWN INDICATION
     Route: 065
     Dates: start: 20110901, end: 20110901
  2. OMEPRAZOLE [Concomitant]
     Route: 065
  3. GALANTAMINE HYDROBROMIDE [Suspect]
     Route: 065
     Dates: start: 20110101, end: 20110901

REACTIONS (3)
  - MALAISE [None]
  - NAUSEA [None]
  - INGUINAL HERNIA REPAIR [None]
